FAERS Safety Report 17917716 (Version 1)
Quarter: 2020Q2

REPORT INFORMATION
  Report Type: Report from Study
  Country: US (occurrence: US)
  Receive Date: 20200619
  Receipt Date: 20200619
  Transmission Date: 20200714
  Serious: No
  Sender: FDA-Public Use
  Company Number: NVSC2020US172023

PATIENT
  Sex: Male

DRUGS (4)
  1. ENTRESTO [Suspect]
     Active Substance: SACUBITRIL\VALSARTAN
     Dosage: 0.5 DF (SPLIT OF 49/51 MG), BID
     Route: 048
  2. ENTRESTO [Suspect]
     Active Substance: SACUBITRIL\VALSARTAN
     Dosage: 0.5 DF (SPLIT IN 24/26 MG), BID
     Route: 048
  3. ENTRESTO [Suspect]
     Active Substance: SACUBITRIL\VALSARTAN
     Indication: PRODUCT USED FOR UNKNOWN INDICATION
     Dosage: 50 MG (24/26 MG), BID
     Route: 048
  4. ENTRESTO [Suspect]
     Active Substance: SACUBITRIL\VALSARTAN
     Dosage: 100 MG (49/51 MG), BID
     Route: 048

REACTIONS (3)
  - Dizziness [Not Recovered/Not Resolved]
  - Wrong technique in product usage process [Unknown]
  - Underdose [Unknown]
